FAERS Safety Report 22146703 (Version 1)
Quarter: 2023Q1

REPORT INFORMATION
  Report Type: Spontaneous
  Country: US (occurrence: None)
  Receive Date: 20230327
  Receipt Date: 20230327
  Transmission Date: 20230417
  Serious: Yes (Disabling)
  Sender: FDA-Public Use
  Company Number: None

PATIENT
  Age: 59 Year
  Sex: Female
  Weight: 77.4 kg

DRUGS (10)
  1. TREMFYA [Suspect]
     Active Substance: GUSELKUMAB
     Indication: Psoriasis
     Dosage: OTHER QUANTITY : 1 INJECTION(S);?OTHER FREQUENCY : 4 WEEKS INITIALLY;?
     Route: 058
     Dates: start: 20230118, end: 20230327
  2. TREMFYA [Concomitant]
     Active Substance: GUSELKUMAB
  3. ARIPIPRAZOLE [Concomitant]
     Active Substance: ARIPIPRAZOLE
  4. MONTELUKAST [Concomitant]
     Active Substance: MONTELUKAST SODIUM
  5. PRAVASTATIN [Concomitant]
     Active Substance: PRAVASTATIN
  6. telimartan [Concomitant]
  7. METOPROLOL [Concomitant]
     Active Substance: METOPROLOL
  8. LAMOTRIGINE [Concomitant]
     Active Substance: LAMOTRIGINE
  9. VITAMIN B12 [Concomitant]
     Active Substance: CYANOCOBALAMIN
  10. VITAMIN D3 [Concomitant]
     Active Substance: CHOLECALCIFEROL

REACTIONS (4)
  - Hypomania [None]
  - Social avoidant behaviour [None]
  - Sleep disorder [None]
  - Feeling abnormal [None]

NARRATIVE: CASE EVENT DATE: 20230201
